FAERS Safety Report 15210420 (Version 2)
Quarter: 2020Q2

REPORT INFORMATION
  Report Type: Spontaneous
  Country: US (occurrence: US)
  Receive Date: 20180727
  Receipt Date: 20200520
  Transmission Date: 20200713
  Serious: Yes (Other)
  Sender: FDA-Public Use
  Company Number: US-SA-2018SA202388

PATIENT
  Age: 61 Year
  Sex: Female
  Weight: 106 kg

DRUGS (4)
  1. DOCETAXEL. [Suspect]
     Active Substance: DOCETAXEL
     Dosage: 162 MG, Q3W
     Route: 042
     Dates: start: 20151117, end: 20151117
  2. DOCETAXEL. [Suspect]
     Active Substance: DOCETAXEL
     Dosage: 162 MG, Q3W
     Route: 042
     Dates: start: 20160223, end: 20160223
  3. HERCEPTIN [Concomitant]
     Active Substance: TRASTUZUMAB
     Indication: BREAST CANCER FEMALE
  4. CARBOPLATIN. [Concomitant]
     Active Substance: CARBOPLATIN
     Indication: BREAST CANCER FEMALE

REACTIONS (1)
  - Alopecia [Recovering/Resolving]

NARRATIVE: CASE EVENT DATE: 20160506
